FAERS Safety Report 18182849 (Version 1)
Quarter: 2020Q3

REPORT INFORMATION
  Report Type: Other
  Country: CN (occurrence: CN)
  Receive Date: 20200821
  Receipt Date: 20200821
  Transmission Date: 20201103
  Serious: Yes (Death)
  Sender: FDA-Public Use
  Company Number: CN-VITRUVIAS THERAPEUTICS-2088908

PATIENT
  Age: 36 Year
  Sex: Male

DRUGS (3)
  1. POTASSIUM CHLORIDE. [Suspect]
     Active Substance: POTASSIUM CHLORIDE
     Route: 042
  2. PROPOFOL. [Concomitant]
     Active Substance: PROPOFOL
  3. ZOLPIDEM [Concomitant]
     Active Substance: ZOLPIDEM TARTRATE

REACTIONS (2)
  - Acute respiratory failure [Fatal]
  - Circulatory collapse [Fatal]
